FAERS Safety Report 9859017 (Version 2)
Quarter: 2014Q2

REPORT INFORMATION
  Report Type: Spontaneous
  Country: US (occurrence: US)
  Receive Date: 20140131
  Receipt Date: 20140629
  Transmission Date: 20141212
  Serious: Yes (Other)
  Sender: FDA-Public Use
  Company Number: US-PFIZER INC-2014028275

PATIENT
  Age: 50 Year
  Sex: Female
  Weight: 58.96 kg

DRUGS (4)
  1. LIPITOR [Suspect]
     Indication: LOW DENSITY LIPOPROTEIN INCREASED
     Dosage: UNK
     Route: 048
     Dates: start: 200007, end: 200806
  2. LIPITOR [Suspect]
     Indication: CARDIOVASCULAR EVENT PROPHYLAXIS
  3. SOY CARE [Concomitant]
     Indication: MENTAL DISORDER
     Dosage: 1 DF, DAILY
     Dates: start: 1985
  4. CENTRUM SILVER [Concomitant]
     Indication: ROUTINE HEALTH MAINTENANCE
     Dosage: 1 DF, DAILY
     Dates: start: 1990

REACTIONS (1)
  - Type 2 diabetes mellitus [Not Recovered/Not Resolved]
